FAERS Safety Report 6927567-3 (Version None)
Quarter: 2010Q3

REPORT INFORMATION
  Report Type: 
  Country: None (occurrence: None)
  Receive Date: 20100817
  Receipt Date: 20100719
  Transmission Date: 20110219
  Serious: Yes (Hospitalization, Other)
  Sender: FDA-Public Use
  Company Number: US-BAYER-201011742NA

PATIENT
  Age: 34 Year
  Sex: Female
  Weight: 60 kg

DRUGS (20)
  1. YAZ [Suspect]
     Indication: CONTRACEPTION
     Route: 048
     Dates: start: 20070501, end: 20071201
  2. YAZ [Suspect]
     Route: 048
     Dates: start: 20080201, end: 20081201
  3. YAZ [Suspect]
     Route: 048
     Dates: start: 20090101, end: 20090501
  4. YAZ [Suspect]
     Route: 048
     Dates: start: 20090701
  5. CITALOPRAM HYDROBROMIDE [Concomitant]
     Indication: DEPRESSION
     Dates: start: 20080303
  6. CITALOPRAM HYDROBROMIDE [Concomitant]
     Dates: start: 20080610
  7. CYMBALTA [Concomitant]
     Indication: ANXIETY
  8. AZITHROMYCIN [Concomitant]
  9. CEFDINIR [Concomitant]
  10. ADVAIR DISKUS 100/50 [Concomitant]
  11. LOW-OGESTREL-28 [Concomitant]
     Indication: CONTRACEPTION
     Route: 065
     Dates: start: 19900101
  12. LOW-OGESTREL-28 [Concomitant]
     Route: 065
     Dates: start: 20050201, end: 20051201
  13. LOW-OGESTREL-28 [Concomitant]
     Route: 065
     Dates: start: 20060101, end: 20060401
  14. LOW-OGESTREL-28 [Concomitant]
     Route: 065
     Dates: start: 20091109, end: 20100501
  15. HYDROCODONE BITARTRATE AND ACETAMINOPHEN [Concomitant]
     Dosage: 5/500
     Dates: start: 20080724
  16. HYDROCODONE BITARTRATE AND ACETAMINOPHEN [Concomitant]
     Dosage: 5/500
     Dates: start: 20080718
  17. NEXIUM [Concomitant]
     Dates: start: 20080701
  18. AMOXICILLIN [Concomitant]
     Dates: start: 20080411
  19. FLUTICASONE PROPIONATE [Concomitant]
     Dates: start: 20080115
  20. PROMETHAZINE [Concomitant]
     Dates: start: 20080411

REACTIONS (5)
  - ABDOMINAL PAIN UPPER [None]
  - BILIARY COLIC [None]
  - CHOLECYSTITIS CHRONIC [None]
  - CHOLELITHIASIS [None]
  - NAUSEA [None]
